FAERS Safety Report 6038882-2 (Version None)
Quarter: 2009Q1

REPORT INFORMATION
  Report Type: 
  Country: None (occurrence: None)
  Receive Date: 20090115
  Receipt Date: 20081020
  Transmission Date: 20090719
  Serious: No
  Sender: FDA-Public Use
  Company Number: US-ABBOTT-08P-163-0482889-00

PATIENT
  Sex: Female

DRUGS (1)
  1. ADVICOR [Suspect]
     Indication: BLOOD CHOLESTEROL
     Route: 048
     Dates: end: 20080926

REACTIONS (4)
  - FLUSHING [None]
  - INSOMNIA [None]
  - MUSCULAR WEAKNESS [None]
  - MYALGIA [None]
